FAERS Safety Report 7327778-1 (Version None)
Quarter: 2011Q1

REPORT INFORMATION
  Report Type: 
  Country: None (occurrence: None)
  Receive Date: 20110224
  Receipt Date: 20110224
  Transmission Date: 20110831
  Serious: No
  Sender: FDA-Public Use
  Company Number: None

PATIENT
  Age: 30 Year
  Sex: Male

DRUGS (4)
  1. ZITHROMYCIN [Suspect]
     Dates: start: 20090717, end: 20090722
  2. CEFTRIAXONE [Suspect]
     Dates: start: 20090724, end: 20090806
  3. VANCOMYCIN [Suspect]
     Dates: start: 20090725, end: 20090806
  4. CLINDAMYCIN [Suspect]
     Dates: start: 20090724, end: 20090803

REACTIONS (10)
  - BLOOD ALKALINE PHOSPHATASE INCREASED [None]
  - LIVER INJURY [None]
  - HEPATOMEGALY [None]
  - BLOOD BILIRUBIN INCREASED [None]
  - RASH MACULO-PAPULAR [None]
  - TOXICITY TO VARIOUS AGENTS [None]
  - ALANINE AMINOTRANSFERASE INCREASED [None]
  - CHOLELITHIASIS [None]
  - THROMBOCYTOPENIA [None]
  - ASPARTATE AMINOTRANSFERASE INCREASED [None]
